FAERS Safety Report 7610996 (Version 5)
Quarter: 2014Q2

REPORT INFORMATION
  Report Type: Spontaneous
  Country: US (occurrence: US)
  Receive Date: 20100929
  Receipt Date: 20140514
  Transmission Date: 20141212
  Serious: Yes (Hospitalization, Other)
  Sender: FDA-Public Use
  Company Number: US-BAYER-201034730NA

PATIENT
  Age: 42 Year
  Sex: Female
  Weight: 57.14 kg

DRUGS (16)
  1. YASMIN [Suspect]
     Indication: PREMENSTRUAL SYNDROME
     Route: 048
     Dates: start: 2001, end: 20051105
  2. ACIPHEX [Concomitant]
  3. EFFEXOR [Concomitant]
     Indication: DEPRESSION
     Route: 048
  4. DARVOCET [Concomitant]
     Indication: PAIN
     Dosage: UNK UNK, PRN
     Route: 048
     Dates: start: 200807
  5. FENTANYL [Concomitant]
     Indication: PAIN
  6. ULTRAM [Concomitant]
  7. NEXIUM [Concomitant]
  8. ERYTHROMYCIN [Concomitant]
  9. FIORICET [Concomitant]
     Indication: HEADACHE
  10. PROZAC [Concomitant]
  11. TYLENOL [Concomitant]
  12. IBUPROFEN [Concomitant]
  13. RECUCET [Concomitant]
     Indication: PAIN
  14. PROTONIX [Concomitant]
  15. PREVACID [Concomitant]
     Dosage: UNK
     Dates: start: 20060104
  16. TEMAZEPAM [Concomitant]
     Dosage: UNK
     Dates: start: 20040104, end: 20090822

REACTIONS (14)
  - Pulmonary embolism [Unknown]
  - Cardiac arrest [None]
  - Thrombosis [None]
  - Off label use [None]
  - Pain [Unknown]
  - Peripheral swelling [Unknown]
  - Blindness [None]
  - Oesophagitis [None]
  - Constipation [None]
  - Gastrooesophageal reflux disease [None]
  - Dyspepsia [None]
  - Gastritis [None]
  - Myalgia [None]
  - Hiatus hernia [None]
